FAERS Safety Report 21011649 (Version 1)
Quarter: 2022Q3

REPORT INFORMATION
  Report Type: Spontaneous
  Country: IT (occurrence: IT)
  Receive Date: 20220627
  Receipt Date: 20220627
  Transmission Date: 20221027
  Serious: Yes (Hospitalization)
  Sender: FDA-Public Use
  Company Number: IT-NOVARTISPH-NVSC2022IT144370

PATIENT

DRUGS (3)
  1. OLANZAPINE [Suspect]
     Active Substance: OLANZAPINE
     Indication: Bipolar disorder
     Dosage: 2.5 MG, UNKNOWN (10 (0.25)/DAILY DOSE)
     Route: 065
  2. DELORAZEPAM [Concomitant]
     Active Substance: DELORAZEPAM
     Indication: Bipolar disorder
     Dosage: 1 MG, UNKNOWN
     Route: 065
  3. LITHIUM SULFATE [Concomitant]
     Active Substance: LITHIUM SULFATE
     Indication: Bipolar disorder
     Dosage: 166 MG, UNKNOWN
     Route: 065

REACTIONS (1)
  - Muscle rigidity [Unknown]
